FAERS Safety Report 22689522 (Version 2)
Quarter: 2025Q3

REPORT INFORMATION
  Report Type: Spontaneous
  Country: EU (occurrence: EU)
  Receive Date: 20230711
  Receipt Date: 20250702
  Transmission Date: 20251020
  Serious: Yes (Other)
  Sender: AUROBINDO
  Company Number: EU-TEVA-2023-ES-2901276

PATIENT

DRUGS (1)
  1. VORICONAZOLE [Suspect]
     Active Substance: VORICONAZOLE
     Indication: Antifungal prophylaxis
     Route: 065

REACTIONS (4)
  - Erythema [Recovered/Resolved]
  - Lupus-like syndrome [Recovered/Resolved]
  - Photosensitivity reaction [Recovered/Resolved]
  - Skin lesion [Recovered/Resolved]
